FAERS Safety Report 6872836-9 (Version None)
Quarter: 2010Q3

REPORT INFORMATION
  Report Type: 
  Country: None (occurrence: None)
  Receive Date: 20100723
  Receipt Date: 20081121
  Transmission Date: 20110219
  Serious: No
  Sender: FDA-Public Use
  Company Number: US-PFIZER INC-2008089625

PATIENT
  Sex: Female
  Weight: 190 kg

DRUGS (3)
  1. CHANTIX [Suspect]
     Indication: SMOKING CESSATION THERAPY
     Dates: start: 20081001
  2. CELEXA [Concomitant]
  3. OSCAL [Concomitant]

REACTIONS (1)
  - TINNITUS [None]
